FAERS Safety Report 8338860-4 (Version None)
Quarter: 2012Q2

REPORT INFORMATION
  Report Type: 
  Country: None (occurrence: None)
  Receive Date: 20120504
  Receipt Date: 20120320
  Transmission Date: 20120825
  Serious: Yes (Other)
  Sender: FDA-Public Use
  Company Number: CHPA2012US005990

PATIENT
  Sex: Male
  Weight: 86.168 kg

DRUGS (1)
  1. PREVACID 24 HR [Suspect]
     Indication: DIAPHRAGMATIC RUPTURE
     Dosage: 45-60 MG, PER DAY
     Route: 048
     Dates: start: 20120301, end: 20120320

REACTIONS (6)
  - PALPITATIONS [None]
  - BLOOD PRESSURE INCREASED [None]
  - INCORRECT DRUG ADMINISTRATION DURATION [None]
  - DRUG INEFFECTIVE FOR UNAPPROVED INDICATION [None]
  - TACHYCARDIA [None]
  - OVERDOSE [None]
